FAERS Safety Report 21749866 (Version 1)
Quarter: 2022Q4

REPORT INFORMATION
  Report Type: Spontaneous
  Country: GB (occurrence: GB)
  Receive Date: 20221219
  Receipt Date: 20221219
  Transmission Date: 20230112
  Serious: Yes (Other)
  Sender: FDA-Public Use
  Company Number: GB-MHRA-MED-202212131023430560-TDNJM

PATIENT
  Age: 18 Year
  Sex: Male

DRUGS (2)
  1. CITALOPRAM [Suspect]
     Active Substance: CITALOPRAM HYDROBROMIDE
     Indication: Premenstrual syndrome
     Dosage: 20 MILLIGRAM, QD
     Route: 065
     Dates: start: 20221212, end: 20221213
  2. LYMECYCLINE [Concomitant]
     Active Substance: LYMECYCLINE
     Indication: Acne cystic
     Dosage: UNK
     Route: 065
     Dates: start: 20221015

REACTIONS (7)
  - Eye swelling [Recovering/Resolving]
  - Lip swelling [Recovering/Resolving]
  - Tension headache [Recovering/Resolving]
  - Dry mouth [Not Recovered/Not Resolved]
  - Bruxism [Not Recovered/Not Resolved]
  - Fatigue [Not Recovered/Not Resolved]
  - Insomnia [Recovered/Resolved]

NARRATIVE: CASE EVENT DATE: 20221213
